FAERS Safety Report 14496477 (Version 1)
Quarter: 2018Q1

REPORT INFORMATION
  Report Type: Report from Study
  Country: DK (occurrence: DK)
  Receive Date: 20180207
  Receipt Date: 20180207
  Transmission Date: 20180509
  Serious: Yes (Hospitalization)
  Sender: FDA-Public Use
  Company Number: DK-CONCORDIA PHARMACEUTICALS INC.-E2B_00009745

PATIENT
  Age: 74 Year
  Sex: Male
  Weight: 152.1 kg

DRUGS (7)
  1. AVELUMAB [Suspect]
     Active Substance: AVELUMAB
     Indication: BLADDER CANCER
     Dosage: ; CYCLICAL
     Route: 065
     Dates: start: 20171011
  2. PREDNISOLONE. [Suspect]
     Active Substance: PREDNISOLONE
     Indication: HEPATIC PAIN
     Dosage: 50 MILLIGRAM DAILY;
     Route: 048
     Dates: start: 20171213
  3. SULFASALAZINE DELAYED-RELEASE [Concomitant]
     Active Substance: SULFASALAZINE
     Dates: start: 20170418, end: 20171116
  4. SULFASALAZINE DELAYED-RELEASE [Concomitant]
     Active Substance: SULFASALAZINE
     Dates: start: 20171127, end: 20171222
  5. SULFASALAZINE DELAYED-RELEASE [Concomitant]
     Active Substance: SULFASALAZINE
     Dates: start: 2005
  6. IBUPROFEN. [Suspect]
     Active Substance: IBUPROFEN
     Indication: ARTHRALGIA
     Dosage: 400 MILLIGRAM DAILY;
     Route: 065
     Dates: start: 20171127, end: 20171222
  7. PARACETAMOL [Concomitant]
     Active Substance: ACETAMINOPHEN
     Dates: start: 20170405, end: 20171222

REACTIONS (1)
  - Gastric ulcer haemorrhage [Recovered/Resolved]
